FAERS Safety Report 19429588 (Version 1)
Quarter: 2021Q2

REPORT INFORMATION
  Report Type: Spontaneous
  Country: NO (occurrence: NO)
  Receive Date: 20210617
  Receipt Date: 20210617
  Transmission Date: 20210717
  Serious: Yes (Other)
  Sender: FDA-Public Use
  Company Number: NO-TEVA-2021-NO-1922009

PATIENT
  Age: 35 Year
  Sex: Female

DRUGS (4)
  1. VOLTAREN [Suspect]
     Active Substance: DICLOFENAC SODIUM
     Indication: PRODUCT USED FOR UNKNOWN INDICATION
     Dosage: AS NEEDED:THERAPY START DATE :THERAPY END DATE :ASKU
     Route: 065
  2. VENLAFAXINE HYDROCHLORIDE. [Suspect]
     Active Substance: VENLAFAXINE HYDROCHLORIDE
     Indication: PRODUCT USED FOR UNKNOWN INDICATION
     Dosage: THERAPY START DATE:THERAPY END DATE :ASKU
     Route: 065
  3. RITALIN [Suspect]
     Active Substance: METHYLPHENIDATE HYDROCHLORIDE
     Indication: PRODUCT USED FOR UNKNOWN INDICATION
     Dosage: THERAPY START DATE :THERAPY END DATE :ASKU
     Route: 065
  4. ALENDRONATE SODIUM TRIHYDRATE [Suspect]
     Active Substance: ALENDRONATE SODIUM
     Indication: PRODUCT USED FOR UNKNOWN INDICATION
     Dosage: UNK
     Route: 065
     Dates: start: 20010101, end: 20210312

REACTIONS (18)
  - Foot fracture [Unknown]
  - Wound [Unknown]
  - Femur fracture [Unknown]
  - Loose tooth [Unknown]
  - Pain [Unknown]
  - Anxiety [Unknown]
  - Rib fracture [Unknown]
  - Quality of life decreased [Unknown]
  - Asthma [Unknown]
  - Skin fragility [Unknown]
  - Muscular weakness [Unknown]
  - Osteoarthritis [Unknown]
  - Depression [Unknown]
  - Infection [Unknown]
  - Bone disorder [Unknown]
  - Osteoporosis [Unknown]
  - Fear [Unknown]
  - Bone density increased [Unknown]

NARRATIVE: CASE EVENT DATE: 20060101
